FAERS Safety Report 7888338-7 (Version None)
Quarter: 2011Q4

REPORT INFORMATION
  Report Type: 
  Country: None (occurrence: None)
  Receive Date: 20111103
  Receipt Date: 20111021
  Transmission Date: 20120403
  Serious: Yes (Other)
  Sender: FDA-Public Use
  Company Number: JP-SANOFI-AVENTIS-2010SA043933

PATIENT
  Age: 70 Year
  Sex: Male
  Weight: 51.45 kg

DRUGS (13)
  1. DEXAMETHASONE SODIUM PHOSPHATE [Concomitant]
     Dates: start: 20100706, end: 20100706
  2. TAXOTERE [Suspect]
     Route: 041
     Dates: start: 20100706, end: 20100706
  3. CARVEDILOL [Concomitant]
     Indication: HYPERTENSION
     Route: 048
  4. DEXAMETHASONE SODIUM PHOSPHATE [Concomitant]
     Indication: PREMEDICATION
     Dates: start: 20100507, end: 20100507
  5. TAXOTERE [Suspect]
     Route: 041
     Dates: start: 20100602, end: 20100602
  6. ALFAROL [Concomitant]
     Indication: RENAL FAILURE
     Route: 048
  7. ALLOPURINOL [Concomitant]
     Indication: HYPERURICAEMIA
     Route: 048
  8. GRANISETRON [Concomitant]
     Dates: start: 20100602, end: 20100602
  9. AMLODIPINE [Concomitant]
     Indication: HYPERTENSION
     Route: 048
  10. DEXAMETHASONE SODIUM PHOSPHATE [Concomitant]
     Dates: start: 20100602, end: 20100602
  11. TAXOTERE [Suspect]
     Dosage: 60 MG/M2
     Route: 041
     Dates: start: 20100507, end: 20100507
  12. GRANISETRON [Concomitant]
     Indication: PREMEDICATION
     Dates: start: 20100507, end: 20100507
  13. GRANISETRON [Concomitant]
     Dates: start: 20100706, end: 20100706

REACTIONS (2)
  - BETA 2 MICROGLOBULIN URINE INCREASED [None]
  - RENAL TUBULAR DISORDER [None]
